FAERS Safety Report 21456067 (Version 1)
Quarter: 2022Q4

REPORT INFORMATION
  Report Type: Spontaneous
  Country: US (occurrence: None)
  Receive Date: 20221013
  Receipt Date: 20221013
  Transmission Date: 20230112
  Serious: No
  Sender: FDA-Public Use
  Company Number: None

PATIENT
  Age: 64 Year
  Sex: Male
  Weight: 112.04 kg

DRUGS (14)
  1. ABIRATERONE [Suspect]
     Active Substance: ABIRATERONE
     Indication: Prostate cancer
     Dosage: FREQUENCY : DAILY;?
     Route: 048
     Dates: start: 20211106, end: 20221013
  2. AMITRIPTYLINE HYDROCHLORIDE [Concomitant]
     Active Substance: AMITRIPTYLINE HYDROCHLORIDE
  3. BICALUTAMIDE [Concomitant]
  4. ELIQUIS [Concomitant]
  5. ESCITALOPRAM OXALATE [Concomitant]
     Active Substance: ESCITALOPRAM OXALATE
  6. FUROSEMIDE [Concomitant]
  7. GABAPENTIN [Concomitant]
  8. LEVETIRACETAM [Concomitant]
  9. MORPHINE SULFATE ER [Concomitant]
  10. OLANZAPINE [Concomitant]
  11. OXYCODONE HCL [Concomitant]
  12. POTASSIUM CHLORIDE ER [Concomitant]
  13. PREDNISONE [Concomitant]
  14. SIMVASTATIN [Concomitant]

REACTIONS (1)
  - Disease progression [None]
